FAERS Safety Report 24917197 (Version 1)
Quarter: 2025Q1

REPORT INFORMATION
  Report Type: Spontaneous
  Country: US (occurrence: None)
  Receive Date: 20250201
  Receipt Date: 20250201
  Transmission Date: 20250408
  Serious: Yes (Hospitalization)
  Sender: FDA-CTU
  Company Number: None

PATIENT
  Age: 54 Year
  Sex: Female
  Weight: 82.8 kg

DRUGS (5)
  1. LOSARTAN [Suspect]
     Active Substance: LOSARTAN
     Indication: Hypertension
     Dosage: FREQUENCY : DAILY;?
     Dates: start: 20250127, end: 20250130
  2. UNSPECIFIED INGREDIENT [Concomitant]
     Active Substance: UNSPECIFIED INGREDIENT
  3. COENZYME Q10 [Concomitant]
     Active Substance: DIETARY SUPPLEMENT\UBIDECARENONE
  4. VITAMIN D [Concomitant]
     Active Substance: VITAMIN D NOS
  5. CAYENNE PEPPER [Concomitant]
     Active Substance: CAPSICUM

REACTIONS (4)
  - Pain [None]
  - Tremor [None]
  - Muscle spasms [None]
  - Pupillary disorder [None]

NARRATIVE: CASE EVENT DATE: 20250130
